FAERS Safety Report 17442586 (Version 1)
Quarter: 2020Q1

REPORT INFORMATION
  Report Type: Spontaneous
  Country: US (occurrence: US)
  Receive Date: 20200220
  Receipt Date: 20200220
  Transmission Date: 20200409
  Serious: No
  Sender: FDA-Public Use
  Company Number: US-009507513-2002USA007339

PATIENT
  Sex: Female

DRUGS (1)
  1. TRUSOPT [Suspect]
     Active Substance: DORZOLAMIDE HYDROCHLORIDE
     Dosage: 1 DROP INTO LEFT EYE TWICE A DAY
     Route: 047

REACTIONS (3)
  - Product dose omission [Unknown]
  - No adverse event [Unknown]
  - Product container seal issue [Unknown]

NARRATIVE: CASE EVENT DATE: 202002
